FAERS Safety Report 7236218-2 (Version None)
Quarter: 2011Q1

REPORT INFORMATION
  Report Type: 
  Country: None (occurrence: None)
  Receive Date: 20110120
  Receipt Date: 20110110
  Transmission Date: 20110831
  Serious: Yes (Other)
  Sender: FDA-Public Use
  Company Number: TR-WATSON-2011-00397

PATIENT
  Age: 11 Year
  Sex: Female

DRUGS (3)
  1. CLINDAMYCIN HYDROCHLORIDE [Suspect]
     Indication: APPENDICITIS
     Dosage: UNK
     Route: 065
  2. AMIKACIN [Suspect]
     Indication: APPENDICITIS
     Dosage: UNK
  3. AMPICILLIN SODIUM/SULBACTAM SODIUM [Suspect]
     Indication: APPENDICITIS
     Dosage: UNK

REACTIONS (1)
  - ACUTE GENERALISED EXANTHEMATOUS PUSTULOSIS [None]
